FAERS Safety Report 5026840-6 (Version None)
Quarter: 2006Q2

REPORT INFORMATION
  Report Type: 
  Country: None (occurrence: None)
  Receive Date: 20060501
  Receipt Date: 20060207
  Transmission Date: 20061013
  Serious: No
  Sender: FDA-Public Use
  Company Number: 200610735BWH

PATIENT
  Age: 74 Year
  Sex: Female

DRUGS (2)
  1. NEXAVAR [Suspect]
     Indication: METASTASES TO LUNG
     Dosage: 400 MG, BID, ORAL
     Route: 048
     Dates: start: 20060203
  2. NEXAVAR [Suspect]
     Indication: RENAL CELL CARCINOMA STAGE UNSPECIFIED
     Dosage: 400 MG, BID, ORAL
     Route: 048
     Dates: start: 20060203

REACTIONS (1)
  - ABDOMINAL PAIN UPPER [None]
